FAERS Safety Report 9717025 (Version 2)
Quarter: 2013Q4

REPORT INFORMATION
  Report Type: Spontaneous
  Country: US (occurrence: US)
  Receive Date: 20131127
  Receipt Date: 20131127
  Transmission Date: 20140711
  Serious: No
  Sender: FDA-Public Use
  Company Number: US-GILEAD-2009-0020154

PATIENT
  Age: 82 Year
  Sex: Female
  Weight: 58.97 kg

DRUGS (8)
  1. LETAIRIS [Suspect]
     Indication: PULMONARY HYPERTENSION
     Route: 048
     Dates: start: 20090202
  2. COUMADIN [Concomitant]
  3. METOPROLOL [Concomitant]
  4. LIPITOR [Concomitant]
  5. SPIRIVA [Concomitant]
  6. TYLENOL [Concomitant]
  7. CALTRATE [Concomitant]
  8. THERAGRAN [Concomitant]

REACTIONS (1)
  - Muscle spasms [Recovered/Resolved]
